FAERS Safety Report 7379786-2 (Version None)
Quarter: 2011Q1

REPORT INFORMATION
  Report Type: 
  Country: None (occurrence: None)
  Receive Date: 20110329
  Receipt Date: 20110322
  Transmission Date: 20110831
  Serious: Yes (Other)
  Sender: FDA-Public Use
  Company Number: NL-ASTELLAS-2011EU001452

PATIENT
  Sex: Female
  Weight: 59 kg

DRUGS (2)
  1. VESICARE [Suspect]
     Indication: URINARY INCONTINENCE
     Dosage: 5 MG, UID/QD
     Route: 048
     Dates: start: 20100915, end: 20110131
  2. LESCOL [Concomitant]
     Dosage: 40 MG, UID/QD
     Route: 048
     Dates: start: 20000101

REACTIONS (4)
  - TINNITUS [None]
  - VISION BLURRED [None]
  - TOOTH DISORDER [None]
  - DRY MOUTH [None]
